FAERS Safety Report 16643574 (Version 1)
Quarter: 2019Q3

REPORT INFORMATION
  Report Type: Spontaneous
  Country: US (occurrence: US)
  Receive Date: 20190729
  Receipt Date: 20190729
  Transmission Date: 20191004
  Serious: No
  Sender: FDA-Public Use
  Company Number: US-PRINSTON PHARMACEUTICAL INC.-2019PRN00488

PATIENT
  Sex: Female
  Weight: 49.89 kg

DRUGS (2)
  1. LISINOPRIL. [Suspect]
     Active Substance: LISINOPRIL
     Indication: ANXIETY
  2. LISINOPRIL. [Suspect]
     Active Substance: LISINOPRIL
     Indication: HYPERTENSION
     Dosage: 5 MG, 1X/DAY IN THE MORNING

REACTIONS (4)
  - Chest discomfort [Unknown]
  - Urticaria [Unknown]
  - Chest pain [Unknown]
  - Migraine [Unknown]
